FAERS Safety Report 15639528 (Version 2)
Quarter: 2018Q4

REPORT INFORMATION
  Report Type: Spontaneous
  Country: TW (occurrence: TW)
  Receive Date: 20181120
  Receipt Date: 20181126
  Transmission Date: 20190205
  Serious: Yes (Death, Hospitalization)
  Sender: FDA-Public Use
  Company Number: TW-CELGENEUS-TWN-20181104548

PATIENT
  Age: 81 Year
  Sex: Male
  Weight: 60 kg

DRUGS (20)
  1. VENETOCLAX. [Concomitant]
     Active Substance: VENETOCLAX
     Indication: ACUTE MYELOID LEUKAEMIA
     Route: 065
  2. DICLOFENAC SODIUM. [Concomitant]
     Active Substance: DICLOFENAC SODIUM
     Indication: PROPHYLAXIS
     Dosage: 1 APPLICATORFULL
     Route: 061
     Dates: start: 20180822
  3. DICLOFENAC SODIUM. [Concomitant]
     Active Substance: DICLOFENAC SODIUM
     Indication: INJECTION SITE PAIN
  4. LEVOFLOXACIN. [Concomitant]
     Active Substance: LEVOFLOXACIN
     Indication: INFECTION PROPHYLAXIS
     Dosage: 500 MILLIGRAM
     Route: 048
     Dates: start: 20180220
  5. ACETYLCYSTEINE. [Concomitant]
     Active Substance: ACETYLCYSTEINE
     Indication: PRODUCTIVE COUGH
     Dosage: 600 MILLIGRAM
     Route: 048
     Dates: start: 20180425
  6. LEVOCETIRIZINE [Concomitant]
     Active Substance: LEVOCETIRIZINE
     Indication: TRANSFUSION REACTION
  7. AZACITIDINE. [Suspect]
     Active Substance: AZACITIDINE
     Indication: ACUTE MYELOID LEUKAEMIA
     Dosage: 75 MILLIGRAM/SQ. METER
     Route: 058
     Dates: start: 20180109, end: 20181023
  8. TAMSULOSIN HCL [Concomitant]
     Active Substance: TAMSULOSIN HYDROCHLORIDE
     Indication: NOCTURIA
     Dosage: .2 MILLIGRAM
     Route: 048
     Dates: start: 20180223
  9. SEVIKAR [Concomitant]
     Active Substance: AMLODIPINE BESYLATE\OLMESARTAN MEDOXOMIL
     Indication: HYPERTELORISM OF ORBIT
     Dosage: 1 TABLET
     Route: 048
     Dates: start: 20180516
  10. POSACONAZOLE [Concomitant]
     Active Substance: POSACONAZOLE
     Indication: ANTIFUNGAL PROPHYLAXIS
     Dosage: 300 MILLIGRAM
     Route: 048
     Dates: start: 20180105
  11. FAMOTIDINE. [Concomitant]
     Active Substance: FAMOTIDINE
     Indication: PROPHYLAXIS AGAINST GASTROINTESTINAL ULCER
     Dosage: 20 MILLIGRAM
     Route: 048
     Dates: start: 20180212
  12. LEVOCETIRIZINE [Concomitant]
     Active Substance: LEVOCETIRIZINE
     Indication: PROPHYLAXIS
     Dosage: 5 MILLIGRAM
     Route: 048
     Dates: start: 20180815
  13. GLIMEPIRIDE. [Concomitant]
     Active Substance: GLIMEPIRIDE
     Indication: TYPE 2 DIABETES MELLITUS
     Dosage: 2 MILLIGRAM
     Route: 048
     Dates: start: 2007
  14. ESTAZOLAM. [Concomitant]
     Active Substance: ESTAZOLAM
     Indication: PROPHYLAXIS
     Route: 048
     Dates: start: 20180305
  15. ACETYLCYSTEINE. [Concomitant]
     Active Substance: ACETYLCYSTEINE
     Indication: COUGH
  16. BETHANECHOL [Concomitant]
     Active Substance: BETHANECHOL
     Indication: NOCTURIA
     Dosage: 25 MILLIGRAM
     Route: 048
     Dates: start: 20180815
  17. GRANISETRON [Concomitant]
     Active Substance: GRANISETRON
     Indication: PROPHYLAXIS OF NAUSEA AND VOMITING
     Dosage: 1 MILLIGRAM
     Route: 048
     Dates: start: 20180821
  18. POTASSIUM GLUCONATE [Concomitant]
     Active Substance: POTASSIUM GLUCONATE
     Indication: HYPOKALAEMIA
     Dosage: 1190 MILLIGRAM
     Route: 048
     Dates: start: 20180724
  19. BUTENAFINE [Concomitant]
     Indication: INFECTION PROPHYLAXIS
     Dosage: 1 APPLICATORFULL
     Route: 061
     Dates: start: 20180102
  20. MEGESTROL ACETATE. [Concomitant]
     Active Substance: MEGESTROL ACETATE
     Indication: DECREASED APPETITE
     Dosage: 400 MILLIGRAM
     Route: 048
     Dates: start: 20180228

REACTIONS (1)
  - Sepsis [Fatal]

NARRATIVE: CASE EVENT DATE: 20181107
